FAERS Safety Report 5413127-2 (Version None)
Quarter: 2007Q3

REPORT INFORMATION
  Report Type: 
  Country: None (occurrence: None)
  Receive Date: 20070713
  Receipt Date: 20070430
  Transmission Date: 20080115
  Serious: Yes (Hospitalization)
  Sender: FDA-Public Use
  Company Number: US-JNJFOC-20061101227

PATIENT
  Age: 28 Year
  Sex: Female
  Weight: 75.2971 kg

DRUGS (4)
  1. ORTHO EVRA [Suspect]
     Indication: DRUG USE FOR UNKNOWN INDICATION
     Dosage: TRANSDERMAL
     Route: 062
     Dates: start: 20021101, end: 20021222
  2. SERAFEM (ALL OTHER THERAPEUTIC PRODUCTS) [Concomitant]
  3. DARVOCET [Concomitant]
  4. CLARINEX [Concomitant]

REACTIONS (3)
  - CHEST PAIN [None]
  - DEEP VEIN THROMBOSIS [None]
  - PULMONARY EMBOLISM [None]
